FAERS Safety Report 4476843-5 (Version None)
Quarter: 2004Q4

REPORT INFORMATION
  Report Type: 
  Country: None (occurrence: None)
  Receive Date: 20041013
  Receipt Date: 20041004
  Transmission Date: 20050328
  Serious: Yes (Other)
  Sender: FDA-Public Use
  Company Number: 200414558BCC

PATIENT
  Age: 83 Year
  Sex: Male
  Weight: 79.3795 kg

DRUGS (6)
  1. ASPIRIN [Suspect]
     Indication: ARTHRITIS
     Dosage: SEE IMAGE
     Route: 048
  2. ASPIRIN [Suspect]
     Indication: CEREBROVASCULAR ACCIDENT
     Dosage: SEE IMAGE
     Route: 048
  3. ASPIRIN [Suspect]
     Indication: HEADACHE
     Dosage: SEE IMAGE
     Route: 048
  4. ASPIRIN [Suspect]
     Indication: PROPHYLAXIS
     Dosage: SEE IMAGE
     Route: 048
  5. AGGRENOX [Concomitant]
  6. TYLENOL [Concomitant]

REACTIONS (3)
  - HAEMOPTYSIS [None]
  - MUSCLE SPASMS [None]
  - STOMACH DISCOMFORT [None]
